FAERS Safety Report 25538379 (Version 1)
Quarter: 2025Q3

REPORT INFORMATION
  Report Type: Spontaneous
  Country: US (occurrence: US)
  Receive Date: 20250710
  Receipt Date: 20250710
  Transmission Date: 20251020
  Serious: No
  Sender: BIOGEN
  Company Number: US-BIOGEN-2025BI01316592

PATIENT
  Sex: Female

DRUGS (1)
  1. PLEGRIDY [Suspect]
     Active Substance: PEGINTERFERON BETA-1A
     Indication: Multiple sclerosis
     Dosage: DATES ALSO REPORTED 06-MAY-2024 (REFILLED ON 06-MAY-2025 AND RUN OUT WILL BE ON 02-NOV-2025)
     Route: 050
     Dates: start: 20230303

REACTIONS (1)
  - Influenza like illness [Recovered/Resolved]
